FAERS Safety Report 10948737 (Version 1)
Quarter: 2015Q1

REPORT INFORMATION
  Report Type: Spontaneous
  Country: DK (occurrence: None)
  Receive Date: 20150320
  Receipt Date: 20150320
  Transmission Date: 20150721
  Serious: Yes (Other)
  Sender: FDA-Public Use
  Company Number: 2015FE00882

PATIENT

DRUGS (2)
  1. UNKNOWN (PROGESTERONE [Suspect]
     Active Substance: PROGESTERONE
     Indication: IN VITRO FERTILISATION
     Dosage: EQUALS TO OR MORE THAN 3 CYCLES
     Route: 064
  2. UNKNOWN (PROGESTERONE [Suspect]
     Active Substance: PROGESTERONE
     Indication: INFERTILITY
     Dosage: EQUALS TO OR MORE THAN 3 CYCLES
     Route: 064

REACTIONS (2)
  - Maternal drugs affecting foetus [None]
  - Malignant nervous system neoplasm [None]
